FAERS Safety Report 4946921-2 (Version None)
Quarter: 2006Q1

REPORT INFORMATION
  Report Type: 
  Country: None (occurrence: None)
  Receive Date: 20060317
  Receipt Date: 20060307
  Transmission Date: 20060701
  Serious: Yes (Life-Threatening, Hospitalization)
  Sender: FDA-Public Use
  Company Number: GB-JNJFOC-20060303095

PATIENT
  Age: 82 Year
  Sex: Female

DRUGS (6)
  1. ZYDOL [Suspect]
     Indication: DRUG USE FOR UNKNOWN INDICATION
     Route: 065
  2. NEBIVOLOL HCL [Concomitant]
     Indication: HYPERTENSION
     Route: 065
  3. FUROSEMIDE [Concomitant]
     Indication: HYPERTENSION
     Route: 065
  4. RAMIPRIL [Concomitant]
     Indication: HYPERTENSION
     Route: 065
  5. DOXAZOSIN [Concomitant]
     Indication: HYPERTENSION
     Route: 065
  6. ASPIRIN [Concomitant]
     Indication: ANGINA PECTORIS
     Route: 065

REACTIONS (22)
  - ABNORMAL SLEEP-RELATED EVENT [None]
  - AGITATION [None]
  - AMNESIA [None]
  - ANOREXIA [None]
  - BLOOD PRESSURE DECREASED [None]
  - CONFUSIONAL STATE [None]
  - DIZZINESS [None]
  - DRUG HYPERSENSITIVITY [None]
  - DYSPHONIA [None]
  - DYSPNOEA [None]
  - FATIGUE [None]
  - HALLUCINATION [None]
  - HEART RATE DECREASED [None]
  - HYPERHIDROSIS [None]
  - HYPERTENSION [None]
  - INSOMNIA [None]
  - NIGHTMARE [None]
  - PETIT MAL EPILEPSY [None]
  - RESTLESSNESS [None]
  - SOMNOLENCE [None]
  - SYNCOPE [None]
  - TREMOR [None]
